FAERS Safety Report 7311178-4 (Version None)
Quarter: 2011Q1

REPORT INFORMATION
  Report Type: 
  Country: None (occurrence: None)
  Receive Date: 20110224
  Receipt Date: 20110223
  Transmission Date: 20110831
  Serious: Yes (Other)
  Sender: FDA-Public Use
  Company Number: CN-ROCHE-760058

PATIENT
  Age: 58 Year
  Sex: Male

DRUGS (2)
  1. AVASTIN [Suspect]
     Route: 041
     Dates: start: 20101001, end: 20101210
  2. FOLFOX REGIMEN [Concomitant]
     Dates: start: 20101001, end: 20101210

REACTIONS (1)
  - HEPATIC FUNCTION ABNORMAL [None]
